FAERS Safety Report 4509938-8 (Version None)
Quarter: 2004Q4

REPORT INFORMATION
  Report Type: 
  Country: None (occurrence: None)
  Receive Date: 20041119
  Receipt Date: 20041028
  Transmission Date: 20050328
  Serious: Yes (Hospitalization)
  Sender: FDA-Public Use
  Company Number: JP_041004940

PATIENT
  Age: 66 Year
  Sex: Female

DRUGS (5)
  1. EVISTA [Suspect]
     Indication: OSTEOPOROSIS POSTMENOPAUSAL
     Dosage: 60 MG/ 1 DAY
     Dates: start: 20040603, end: 20041018
  2. ZOLPIDEM TARTRATE [Concomitant]
  3. METHYCOBAL (MECOBALAMIN) [Concomitant]
  4. CONIEL (BENIDIPINE HYDROCHLORIDE) [Concomitant]
  5. PABRON [Concomitant]

REACTIONS (3)
  - BLOOD TRIGLYCERIDES INCREASED [None]
  - LOSS OF CONSCIOUSNESS [None]
  - MULTIPLE DRUG OVERDOSE [None]
